FAERS Safety Report 7153216-8 (Version None)
Quarter: 2010Q4

REPORT INFORMATION
  Report Type: 
  Country: None (occurrence: None)
  Receive Date: 20101213
  Receipt Date: 20101202
  Transmission Date: 20110411
  Serious: Yes (Other)
  Sender: FDA-Public Use
  Company Number: JP-GENZYME-FLUD-1000475

PATIENT
  Age: 15 Year
  Sex: Male

DRUGS (10)
  1. FLUDARA [Suspect]
     Indication: BONE MARROW CONDITIONING REGIMEN
     Dosage: 25 MG/M2, QD
     Route: 042
  2. FLUDARA [Suspect]
     Dosage: 25 MG/M2, QD
     Route: 042
  3. THYMOGLOBULIN [Suspect]
     Indication: BONE MARROW CONDITIONING REGIMEN
     Dosage: 1.25 MG/KG, QD
     Route: 042
  4. CYCLOPHOSPHAMIDE [Suspect]
     Indication: BONE MARROW CONDITIONING REGIMEN
     Dosage: 750 MG/M2, QD
     Route: 042
  5. METHOTREXATE [Concomitant]
     Indication: PROPHYLAXIS AGAINST GRAFT VERSUS HOST DISEASE
     Dosage: 15 MG/M2, ONCE
     Route: 065
  6. TACROLIMUS [Concomitant]
     Indication: PROPHYLAXIS AGAINST GRAFT VERSUS HOST DISEASE
     Dosage: 0.02 MG/KG, UNK
     Route: 042
  7. TACROLIMUS [Concomitant]
     Dosage: 0.03 MG/KG, UNK
     Route: 042
  8. NEUPOGEN [Concomitant]
     Indication: PRODUCT USED FOR UNKNOWN INDICATION
     Dosage: UNK
     Route: 065
  9. MELPHALAN HYDROCHLORIDE [Concomitant]
     Indication: BONE MARROW CONDITIONING REGIMEN
     Dosage: UNK
     Route: 065
  10. METHOTREXATE [Concomitant]
     Dosage: 10 MG, DAYS 3, 6, 11
     Route: 065

REACTIONS (4)
  - BONE MARROW TRANSPLANT REJECTION [None]
  - CHRONIC GRAFT VERSUS HOST DISEASE [None]
  - HISTIOCYTOSIS HAEMATOPHAGIC [None]
  - SEPSIS [None]
